FAERS Safety Report 8906040 (Version 1)
Quarter: 2012Q4

REPORT INFORMATION
  Report Type: 
  Country: GB (occurrence: GB)
  Receive Date: 20121111
  Receipt Date: 20121111
  Transmission Date: 20130627
  Serious: Yes (Hospitalization, Disabling)
  Sender: FDA-Public Use
  Company Number: GB-MERCK-1211GBR003496

PATIENT
  Sex: Male

DRUGS (6)
  1. MIRTAZAPINE [Suspect]
     Dosage: 15 mg, qd
     Route: 048
     Dates: start: 20121005, end: 20121006
  2. ATORVASTATIN [Concomitant]
     Dosage: 80 mg, qd
     Route: 048
     Dates: start: 2011
  3. BENDROFLUMETHIAZIDE [Concomitant]
     Dosage: 2.5 mg, qd
  4. BISOPROLOL [Concomitant]
     Dosage: 5 mg, qd
     Route: 048
     Dates: start: 2011
  5. CITALOPRAM [Concomitant]
     Dosage: 20 mg, qd
     Route: 048
     Dates: start: 2011
  6. WARFARIN [Concomitant]
     Dosage: UNK
     Route: 048
     Dates: start: 2011

REACTIONS (6)
  - Urinary tract infection [Unknown]
  - Anxiety [Unknown]
  - Diarrhoea [Unknown]
  - Confusional state [Unknown]
  - Somnolence [Unknown]
  - Dysuria [Unknown]
